FAERS Safety Report 5836066-1 (Version None)
Quarter: 2008Q3

REPORT INFORMATION
  Report Type: 
  Country: None (occurrence: None)
  Receive Date: 20080806
  Receipt Date: 20080729
  Transmission Date: 20090109
  Serious: Yes (Hospitalization)
  Sender: FDA-Public Use
  Company Number: IT-MERCK-0808ITA00004

PATIENT
  Age: 68 Year
  Sex: Male

DRUGS (1)
  1. SINGULAIR [Suspect]
     Indication: ASTHMA
     Route: 048
     Dates: start: 20060101, end: 20080701

REACTIONS (4)
  - ABNORMAL BEHAVIOUR [None]
  - CONSTIPATION [None]
  - DIVERTICULUM [None]
  - HERNIA [None]
